FAERS Safety Report 12651769 (Version 1)
Quarter: 2016Q3

REPORT INFORMATION
  Report Type: Spontaneous
  Country: US (occurrence: US)
  Receive Date: 20160815
  Receipt Date: 20160815
  Transmission Date: 20161109
  Serious: No
  Sender: FDA-Public Use
  Company Number: US-B.I. PHARMACEUTICALS,INC./RIDGEFIELD-2016-BI-50644BP

PATIENT
  Sex: Male

DRUGS (3)
  1. GLYXAMBI [Suspect]
     Active Substance: EMPAGLIFLOZIN\LINAGLIPTIN
     Indication: TYPE 2 DIABETES MELLITUS
     Dosage: 1 ANZ
     Route: 048
     Dates: start: 2015, end: 2015
  2. METFORMIN [Concomitant]
     Active Substance: METFORMIN HYDROCHLORIDE
     Indication: PRODUCT USED FOR UNKNOWN INDICATION
     Dosage: 2000 MG
     Route: 048
  3. GLYXAMBI [Suspect]
     Active Substance: EMPAGLIFLOZIN\LINAGLIPTIN
     Dosage: 1 ANZ
     Route: 048
     Dates: start: 2015

REACTIONS (2)
  - Weight decreased [Not Recovered/Not Resolved]
  - Energy increased [Not Recovered/Not Resolved]

NARRATIVE: CASE EVENT DATE: 2015
